FAERS Safety Report 13431397 (Version 1)
Quarter: 2017Q2

REPORT INFORMATION
  Report Type: Spontaneous
  Country: FR (occurrence: FR)
  Receive Date: 20170412
  Receipt Date: 20170412
  Transmission Date: 20170830
  Serious: Yes (Hospitalization, Other)
  Sender: FDA-Public Use
  Company Number: FR-AMGEN-FRASP2017053972

PATIENT
  Age: 66 Year
  Sex: Female

DRUGS (14)
  1. UVEDOSE [Suspect]
     Active Substance: CHOLECALCIFEROL
     Indication: VITAMIN SUPPLEMENTATION
     Dosage: UNK (ONE AMPOULE)
     Route: 065
     Dates: start: 20170228
  2. KEPPRA [Concomitant]
     Active Substance: LEVETIRACETAM
     Dosage: 500 MG, BID
  3. VITAMIN B12 [Suspect]
     Active Substance: CYANOCOBALAMIN
     Indication: VITAMIN SUPPLEMENTATION
     Dosage: UNK
     Route: 065
     Dates: start: 20170227, end: 20170228
  4. NEFOPAM [Suspect]
     Active Substance: NEFOPAM
     Indication: PAIN
     Dosage: UNK UNK, TID (20 MG/2 ML)
     Route: 065
     Dates: start: 20170228
  5. ATORVASTATIN [Concomitant]
     Active Substance: ATORVASTATIN
     Dosage: 20 MG, QD
  6. NEULASTA [Suspect]
     Active Substance: PEGFILGRASTIM
     Indication: PROPHYLAXIS
     Dosage: 6 MG, UNK
     Route: 065
     Dates: start: 20170228
  7. MEDROL [Concomitant]
     Active Substance: METHYLPREDNISOLONE
     Dosage: 16 MG, QD
  8. EUCREAS [Concomitant]
     Active Substance: METFORMIN HYDROCHLORIDE\VILDAGLIPTIN
     Dosage: UNK (50/1000 2X/D)
  9. TEMODAL [Concomitant]
     Active Substance: TEMOZOLOMIDE
     Dosage: UNK
     Dates: start: 201612, end: 20170209
  10. DIFFU K [Concomitant]
     Active Substance: POTASSIUM CHLORIDE
     Dosage: 600 MG, TID, 2 CAPSULES 3X/D
     Dates: start: 20170225
  11. METFORMIN [Concomitant]
     Active Substance: METFORMIN HYDROCHLORIDE
     Dosage: 1000 MG, QD
  12. ALLOPURINOL. [Concomitant]
     Active Substance: ALLOPURINOL
     Dosage: 100 MG, QD
  13. ALTIZIDE W/SPIRONOLACTONE [Concomitant]
     Active Substance: ALTHIAZIDE\SPIRONOLACTONE
     Dosage: UNK (25/15 MG/D)
  14. ATENOLOL. [Concomitant]
     Active Substance: ATENOLOL
     Dosage: 100 MG, QD

REACTIONS (2)
  - Macroglossia [Recovered/Resolved]
  - Dysphonia [Recovered/Resolved]

NARRATIVE: CASE EVENT DATE: 20170228
